FAERS Safety Report 10655117 (Version 1)
Quarter: 2014Q4

REPORT INFORMATION
  Report Type: Spontaneous
  Country: JP (occurrence: JP)
  Receive Date: 20141216
  Receipt Date: 20141216
  Transmission Date: 20150529
  Serious: Yes (Other)
  Sender: FDA-Public Use
  Company Number: JP-ASTELLAS-2014US020307

PATIENT
  Age: 79 Year
  Sex: Female

DRUGS (9)
  1. MICAFUNGIN SODIUM [Suspect]
     Active Substance: MICAFUNGIN SODIUM
     Indication: PRODUCT USED FOR UNKNOWN INDICATION
     Dosage: UNK UNK, UNKNOWN FREQ.
     Route: 065
     Dates: start: 201303, end: 201303
  2. MICAFUNGIN SODIUM [Suspect]
     Active Substance: MICAFUNGIN SODIUM
     Route: 065
     Dates: start: 201303, end: 201303
  3. AMPHOTERICIN B. [Concomitant]
     Active Substance: AMPHOTERICIN B
     Indication: PRODUCT USED FOR UNKNOWN INDICATION
     Dosage: 5 MCG/ML, UNKNOWN FREQ.
     Route: 050
  4. AMPHOTERICIN B, LIPOSOME [Suspect]
     Active Substance: AMPHOTERICIN B
     Indication: PRODUCT USED FOR UNKNOWN INDICATION
     Route: 042
     Dates: start: 201303, end: 201303
  5. VORICONAZOLE. [Suspect]
     Active Substance: VORICONAZOLE
     Dosage: UNK, UNKNOWN FREQ.
     Route: 065
     Dates: start: 201304
  6. VANCOMYCIN [Concomitant]
     Active Substance: VANCOMYCIN
     Indication: PRODUCT USED FOR UNKNOWN INDICATION
     Dosage: 20 MCG/ML, UNKNOWN FREQ.
     Route: 065
  7. CEFTAZIDIME. [Concomitant]
     Active Substance: CEFTAZIDIME
     Indication: PRODUCT USED FOR UNKNOWN INDICATION
     Dosage: 40 MCG/ML, UNKNOWN FREQ.
     Route: 065
  8. AMPHOTERICIN B, LIPOSOME [Suspect]
     Active Substance: AMPHOTERICIN B
     Dosage: UNK, UNKNOWN FREQ.
     Route: 042
     Dates: start: 201304
  9. VORICONAZOLE. [Suspect]
     Active Substance: VORICONAZOLE
     Indication: PRODUCT USED FOR UNKNOWN INDICATION
     Route: 048
     Dates: start: 201303, end: 201303

REACTIONS (5)
  - Macular oedema [Unknown]
  - Visual acuity reduced [Unknown]
  - Generalised oedema [Unknown]
  - Hypokalaemia [Unknown]
  - Pancytopenia [Unknown]
